FAERS Safety Report 4819271-2 (Version None)
Quarter: 2005Q4

REPORT INFORMATION
  Report Type: 
  Country: None (occurrence: None)
  Receive Date: 20051103
  Receipt Date: 20050414
  Transmission Date: 20060501
  Serious: Yes (Other)
  Sender: FDA-Public Use
  Company Number: US-MERCK-0504USA02925

PATIENT
  Age: 50 Year
  Sex: Male
  Weight: 109 kg

DRUGS (10)
  1. VIOXX [Suspect]
     Indication: LIMB INJURY
     Route: 048
     Dates: start: 20000317, end: 20010203
  2. VIOXX [Suspect]
     Route: 048
     Dates: start: 20000317, end: 20010203
  3. AMBIEN [Concomitant]
     Route: 065
  4. ULTRAM [Concomitant]
     Indication: PAIN
     Route: 065
  5. PROMETHAZINE [Concomitant]
     Route: 065
  6. OXYCONTIN [Concomitant]
     Route: 065
  7. HYDROCODONE BITARTRATE + ACETAMINOPHEN [Concomitant]
     Route: 065
  8. OXYCODONE AND ACETAMINOPHEN [Concomitant]
     Route: 065
  9. NAPRELAN [Concomitant]
     Indication: PAIN
     Route: 065
  10. PROPOXYPHENE NAPSYLATE [Concomitant]
     Route: 065

REACTIONS (2)
  - HYPERTENSION [None]
  - MYOCARDIAL INFARCTION [None]
